FAERS Safety Report 8810186 (Version 8)
Quarter: 2013Q2

REPORT INFORMATION
  Report Type: Report from Study
  Country: AU (occurrence: AU)
  Receive Date: 20120926
  Receipt Date: 20130424
  Transmission Date: 20140414
  Serious: Yes (Hospitalization, Other)
  Sender: FDA-Public Use
  Company Number: AU-GENZYME-CAMP-1002402

PATIENT
  Age: 38 Year
  Sex: Female
  Weight: 64 kg

DRUGS (3)
  1. ALEMTUZUMAB [Suspect]
     Indication: MULTIPLE SCLEROSIS
     Dosage: 24 MG, QD
     Route: 042
     Dates: start: 20100420, end: 20100422
  2. ALEMTUZUMAB [Suspect]
     Dosage: 24 MG, QD
     Route: 042
     Dates: start: 20090427, end: 20090501
  3. MICROGYNON [Concomitant]
     Indication: CONTRACEPTION
     Dosage: 30 MG, QD
     Route: 048
     Dates: start: 20090301

REACTIONS (2)
  - Basedow^s disease [Recovered/Resolved with Sequelae]
  - Hypomania [Recovered/Resolved]
